FAERS Safety Report 18390476 (Version 1)
Quarter: 2020Q4

REPORT INFORMATION
  Report Type: Spontaneous
  Country: US (occurrence: US)
  Receive Date: 20201016
  Receipt Date: 20201016
  Transmission Date: 20210114
  Serious: No
  Sender: FDA-Public Use
  Company Number: US-BION-009041

PATIENT

DRUGS (1)
  1. BIONPHARMA^S LORATIDIN UNSPECIFIED [Suspect]
     Active Substance: LORATADINE
     Indication: PRODUCT USED FOR UNKNOWN INDICATION
     Dosage: STRENGTH 10 MG

REACTIONS (1)
  - Therapeutic product effect delayed [Not Recovered/Not Resolved]
